FAERS Safety Report 24402749 (Version 1)
Quarter: 2024Q4

REPORT INFORMATION
  Report Type: Spontaneous
  Country: AT (occurrence: AT)
  Receive Date: 20241007
  Receipt Date: 20241007
  Transmission Date: 20250114
  Serious: Yes (Other)
  Sender: ABBVIE
  Company Number: AT-ABBVIE-5949203

PATIENT
  Age: 67 Year
  Sex: Male

DRUGS (3)
  1. VENETOCLAX [Suspect]
     Active Substance: VENETOCLAX
     Indication: Mantle cell lymphoma
     Dosage: FREQUENCY TEXT: 2 CYCLES (2X)
     Route: 048
     Dates: start: 202305, end: 202307
  2. IBRUTINIB [Suspect]
     Active Substance: IBRUTINIB
     Indication: Product used for unknown indication
     Dosage: FREQUENCY TEXT: 2 CYCLES (2X)
     Route: 048
     Dates: start: 202305, end: 202307
  3. BORTEZOMIB [Suspect]
     Active Substance: BORTEZOMIB
     Indication: Mantle cell lymphoma
     Route: 065

REACTIONS (5)
  - Mantle cell lymphoma [Unknown]
  - Blood lactate dehydrogenase abnormal [Unknown]
  - General physical health deterioration [Unknown]
  - Abdominal pain [Unknown]
  - Off label use [Recovered/Resolved]

NARRATIVE: CASE EVENT DATE: 20230101
